FAERS Safety Report 8414048-3 (Version None)
Quarter: 2012Q2

REPORT INFORMATION
  Report Type: 
  Country: None (occurrence: None)
  Receive Date: 20120605
  Receipt Date: 20120531
  Transmission Date: 20120825
  Serious: Yes (Hospitalization)
  Sender: FDA-Public Use
  Company Number: GB-JNJFOC-20120412631

PATIENT
  Sex: Male

DRUGS (8)
  1. OILATUM [Concomitant]
     Indication: PSORIASIS
     Route: 065
  2. NICORETTE [Suspect]
     Indication: SMOKING CESSATION THERAPY
     Route: 062
     Dates: start: 20120413
  3. NICORETTE [Suspect]
     Indication: SMOKING CESSATION THERAPY
     Route: 002
  4. BALNEUM [Concomitant]
     Indication: PSORIASIS
     Route: 065
  5. DOUBLEBASE [Concomitant]
     Indication: PSORIASIS
     Route: 065
  6. ACETAMINOPHEN AND CODEINE PHOSPHATE [Concomitant]
     Dosage: 1-2 DOSES
     Route: 065
  7. PROPRANOLOL [Concomitant]
     Dosage: 10 D
     Route: 065
  8. NICORETTE [Suspect]
     Route: 062

REACTIONS (1)
  - PSORIASIS [None]
